FAERS Safety Report 18608347 (Version 2)
Quarter: 2020Q4

REPORT INFORMATION
  Report Type: Spontaneous
  Country: CN (occurrence: CN)
  Receive Date: 20201212
  Receipt Date: 20201226
  Transmission Date: 20210114
  Serious: Yes (Hospitalization, Congenital Anomaly, Other)
  Sender: FDA-Public Use
  Company Number: CN-UCBSA-2020049782

PATIENT
  Age: 0 Year
  Sex: Male
  Weight: 2.93 kg

DRUGS (2)
  1. ETANERCEPT [Concomitant]
     Active Substance: ETANERCEPT
     Route: 064
  2. CIMZIA [Suspect]
     Active Substance: CERTOLIZUMAB PEGOL
     Indication: ANKYLOSING SPONDYLITIS
     Dosage: 200 MILLIGRAM, EV 15 DAYS
     Route: 064
     Dates: start: 20200218, end: 20200805

REACTIONS (4)
  - Calcium deficiency [Unknown]
  - Pneumonia [Recovered/Resolved]
  - Congenital anomaly [Unknown]
  - Maternal exposure during pregnancy [Unknown]

NARRATIVE: CASE EVENT DATE: 2020
